FAERS Safety Report 7609446-1 (Version None)
Quarter: 2011Q3

REPORT INFORMATION
  Report Type: 
  Country: None (occurrence: None)
  Receive Date: 20110714
  Receipt Date: 20110630
  Transmission Date: 20111222
  Serious: Yes (Other)
  Sender: FDA-Public Use
  Company Number: US-BAYER-2011-056823

PATIENT
  Sex: Female

DRUGS (4)
  1. BETASERON [Suspect]
     Indication: MULTIPLE SCLEROSIS
     Dosage: UNK
     Dates: start: 20110623
  2. ACETAMINOPHEN [Concomitant]
     Indication: INFLUENZA LIKE ILLNESS
     Dosage: UNK
  3. LORCET-HD [Concomitant]
     Indication: BACK PAIN
  4. LORCET-HD [Concomitant]
     Indication: PAIN IN EXTREMITY
     Dosage: 10 MG, QID

REACTIONS (7)
  - INJECTION SITE ERYTHEMA [None]
  - DEPRESSION [None]
  - TEMPERATURE INTOLERANCE [None]
  - MOBILITY DECREASED [None]
  - INFLUENZA LIKE ILLNESS [None]
  - MULTIPLE SCLEROSIS [None]
  - PAIN IN EXTREMITY [None]
